FAERS Safety Report 10959414 (Version 1)
Quarter: 2015Q1

REPORT INFORMATION
  Report Type: Spontaneous
  Country: FR (occurrence: FR)
  Receive Date: 20150327
  Receipt Date: 20150327
  Transmission Date: 20150721
  Serious: Yes (Other)
  Sender: FDA-Public Use
  Company Number: FR-UCBSA-2014011823

PATIENT
  Age: 47 Year
  Sex: Male

DRUGS (9)
  1. TRAMADOL + PARACETAMOL MEPHA [Concomitant]
     Indication: PAIN
     Dosage: 1 TAB FOR PAIN ON REQUEST AND 1 TAB AT NIGHT EVERYDAY; STRENGTH: 37.5MG/325MG
  2. VERSATIS [Concomitant]
     Active Substance: LIDOCAINE
     Indication: PRODUCT USED FOR UNKNOWN INDICATION
     Dosage: 2 PATCHES DAILY; STRENGTH: 5%
  3. NEUPRO [Suspect]
     Active Substance: ROTIGOTINE
     Dosage: 8 MG, ONCE DAILY (QD)
     Route: 062
  4. NEUPRO [Suspect]
     Active Substance: ROTIGOTINE
     Dosage: 16 MG, ONCE DAILY (QD)
     Route: 062
  5. SINEMET [Concomitant]
     Active Substance: CARBIDOPA\LEVODOPA
     Indication: PRODUCT USED FOR UNKNOWN INDICATION
     Dosage: 1 DF, ONCE DAILY (QD), 1 TAB AT NIGHT; STRENGTH: 200MG/50MG
  6. CARBIDOPA LEVODOPA [Concomitant]
     Active Substance: CARBIDOPA\LEVODOPA
     Indication: PRODUCT USED FOR UNKNOWN INDICATION
     Dosage: 2.5 TABS AT 08 AM AND 04 PM, 2 TABS AT NOON AND 1 TAB AT 08 PM; STRENGTH: 10MG/100MG
  7. MOTILIUM [Concomitant]
     Active Substance: DOMPERIDONE
     Indication: NAUSEA
     Dosage: 1 DF, 3X/DAY (TID)
  8. NEUPRO [Suspect]
     Active Substance: ROTIGOTINE
     Indication: PRODUCT USED FOR UNKNOWN INDICATION
     Dosage: 4 MG, ONCE DAILY (QD)
     Route: 062
  9. PROPRANOLOL [Concomitant]
     Active Substance: PROPRANOLOL\PROPRANOLOL HYDROCHLORIDE
     Indication: PRODUCT USED FOR UNKNOWN INDICATION
     Dosage: 1 DF, ONCE DAILY (QD), 1 TAB IN THE MORNING; STRENGTH: 80ML LP

REACTIONS (2)
  - Impulse-control disorder [Recovered/Resolved]
  - Psychomotor hyperactivity [Recovered/Resolved]
